FAERS Safety Report 9057810 (Version 1)
Quarter: 2013Q1

REPORT INFORMATION
  Report Type: Spontaneous
  Country: US (occurrence: None)
  Receive Date: 20130204
  Receipt Date: 20130204
  Transmission Date: 20140127
  Serious: Yes (Hospitalization)
  Sender: FDA-Public Use
  Company Number: None

PATIENT
  Age: 41 Year
  Sex: Female

DRUGS (2)
  1. RINGERS [Suspect]
     Dates: start: 20121226, end: 20121226
  2. LORTAB [Concomitant]

REACTIONS (2)
  - Chest pain [None]
  - Feeling abnormal [None]
